FAERS Safety Report 6105908-7 (Version None)
Quarter: 2009Q1

REPORT INFORMATION
  Report Type: 
  Country: None (occurrence: None)
  Receive Date: 20090306
  Receipt Date: 20090306
  Transmission Date: 20090719
  Serious: Yes (Death, Hospitalization)
  Sender: FDA-Public Use
  Company Number: None

PATIENT
  Age: 30 Year
  Sex: Female
  Weight: 127.0072 kg

DRUGS (2)
  1. GEODON [Suspect]
     Indication: DEPRESSION
     Dosage: 6 CARD 2 CAPSULES 1 MORNING 1 EVENING
     Dates: start: 20081101
  2. GEODON [Suspect]
     Dosage: 6 CARDS X 2 CAPS DIED ON NOV 10, 2008

REACTIONS (4)
  - ANGINA PECTORIS [None]
  - DRUG INTERACTION [None]
  - DYSPNOEA [None]
  - HEADACHE [None]
